FAERS Safety Report 16809244 (Version 2)
Quarter: 2019Q3

REPORT INFORMATION
  Report Type: Spontaneous
  Country: CA (occurrence: CA)
  Receive Date: 20190916
  Receipt Date: 20190916
  Transmission Date: 20191005
  Serious: Yes (Hospitalization, Other)
  Sender: FDA-Public Use
  Company Number: PHHY2019CA213840

PATIENT
  Age: 82 Year
  Sex: Female

DRUGS (3)
  1. CODEINE PHOSPHATE [Suspect]
     Active Substance: CODEINE PHOSPHATE
     Indication: PRODUCT USED FOR UNKNOWN INDICATION
     Dosage: UNK
     Route: 065
  2. SANDOSTATIN LAR DEPOT [Suspect]
     Active Substance: OCTREOTIDE ACETATE
     Indication: MICROCYTIC ANAEMIA
     Dosage: 10 MG, QMO
     Route: 030
  3. BISOPROLOL FUMARATE. [Suspect]
     Active Substance: BISOPROLOL FUMARATE
     Indication: PRODUCT USED FOR UNKNOWN INDICATION
     Dosage: 5 MG, UNK
     Route: 065

REACTIONS (26)
  - Dementia Alzheimer^s type [Unknown]
  - Gait disturbance [Unknown]
  - Headache [Unknown]
  - Increased bronchial secretion [Unknown]
  - Abdominal pain [Unknown]
  - Blood pressure diastolic decreased [Unknown]
  - Bronchitis [Unknown]
  - Blood pressure systolic decreased [Unknown]
  - Body temperature decreased [Unknown]
  - Feeling hot [Unknown]
  - Haemorrhage [Unknown]
  - Malaise [Unknown]
  - Asthenia [Unknown]
  - Heart rate decreased [Unknown]
  - Blood pressure increased [Unknown]
  - Product use in unapproved indication [Unknown]
  - Renal failure [Unknown]
  - Arthralgia [Unknown]
  - Chest pain [Unknown]
  - Muscle fatigue [Unknown]
  - Abdominal pain upper [Unknown]
  - Injection site pain [Unknown]
  - Decreased appetite [Unknown]
  - Dizziness [Unknown]
  - Cough [Unknown]
  - Gastroenteritis [Unknown]
